FAERS Safety Report 5707231-9 (Version None)
Quarter: 2008Q2

REPORT INFORMATION
  Report Type: 
  Country: None (occurrence: None)
  Receive Date: 20080415
  Receipt Date: 20080415
  Transmission Date: 20081010
  Serious: Yes (Life-Threatening, Hospitalization)
  Sender: FDA-Public Use
  Company Number: None

PATIENT
  Sex: Male
  Weight: 84 kg

DRUGS (13)
  1. GLEEVEC [Suspect]
     Indication: GLIOBLASTOMA MULTIFORME
     Dosage: 900MG PO QD
     Route: 048
     Dates: start: 20080123
  2. RAD001 [Suspect]
     Indication: GLIOBLASTOMA MULTIFORME
     Dosage: 2.5MG PO QOD
     Route: 048
     Dates: start: 20080123
  3. LISINOPRIL [Concomitant]
  4. HYDROCHLOROTHIAZIDE [Concomitant]
  5. DEPAKOTE [Concomitant]
  6. HYDROXYUREA [Concomitant]
  7. ZANTAC [Concomitant]
  8. PHENOBARBITAL TAB [Concomitant]
  9. SINGULAIR [Concomitant]
  10. COLACE [Concomitant]
  11. LORAZEPAM [Concomitant]
  12. VICODIN [Concomitant]
  13. LOVENOX [Concomitant]

REACTIONS (3)
  - HAEMOGLOBIN DECREASED [None]
  - PAIN [None]
  - REFUSAL OF TREATMENT BY RELATIVE [None]
